FAERS Safety Report 9740069 (Version 5)
Quarter: 2014Q1

REPORT INFORMATION
  Report Type: Report from Study
  Country: US (occurrence: US)
  Receive Date: 20131209
  Receipt Date: 20140108
  Transmission Date: 20141002
  Serious: Yes (Hospitalization)
  Sender: FDA-Public Use
  Company Number: US-GLAXOSMITHKLINE-A1052527A

PATIENT
  Age: 84 Year
  Sex: Female

DRUGS (7)
  1. PAZOPANIB [Suspect]
     Indication: ANGIOSARCOMA
     Dosage: 800MG PER DAY
     Route: 048
  2. METOPROLOL [Concomitant]
     Dosage: 25MG TWICE PER DAY
  3. AMLODIPINE [Concomitant]
     Dosage: 5MG TWICE PER DAY
  4. POTASSIUM [Concomitant]
     Dosage: 10MG THREE TIMES PER DAY
  5. GLYBURIDE [Concomitant]
     Dosage: 5MG TWICE PER DAY
  6. XANAX [Concomitant]
     Dosage: .5MG AS REQUIRED
  7. EFFEXOR [Concomitant]
     Dosage: 25MG PER DAY

REACTIONS (4)
  - Platelet count decreased [Unknown]
  - Urinary tract infection [Unknown]
  - Vomiting [Unknown]
  - Dehydration [Unknown]
